FAERS Safety Report 6922046-1 (Version None)
Quarter: 2010Q3

REPORT INFORMATION
  Report Type: 
  Country: None (occurrence: None)
  Receive Date: 20100812
  Receipt Date: 20100803
  Transmission Date: 20110219
  Serious: Yes (Death, Other)
  Sender: FDA-Public Use
  Company Number: US-BAXTER-2010BH018360

PATIENT
  Age: 82 Year
  Sex: Female

DRUGS (1)
  1. DIANEAL [Suspect]
     Indication: PERITONEAL DIALYSIS
     Route: 033
     Dates: end: 20100101

REACTIONS (4)
  - ABDOMINAL INFECTION [None]
  - INTESTINAL ISCHAEMIA [None]
  - INTESTINAL PERFORATION [None]
  - SEPSIS [None]
